FAERS Safety Report 6465815-7 (Version None)
Quarter: 2009Q4

REPORT INFORMATION
  Report Type: 
  Country: None (occurrence: None)
  Receive Date: 20091201
  Receipt Date: 20091123
  Transmission Date: 20100525
  Serious: Yes (Hospitalization)
  Sender: FDA-Public Use
  Company Number: BE-ABBOTT-09P-013-0602900-00

PATIENT
  Sex: Female

DRUGS (4)
  1. TEVETEN [Suspect]
     Indication: HYPERTENSION
     Dates: start: 20080801, end: 20080810
  2. SIPRALEXA [Concomitant]
     Indication: DEPRESSION
     Route: 048
     Dates: start: 20060901
  3. SERLAIN [Concomitant]
     Indication: DEPRESSION
     Route: 048
     Dates: start: 20060901
  4. DOMINAL [Concomitant]
     Indication: DEPRESSION
     Route: 048
     Dates: start: 20060901

REACTIONS (1)
  - MITRAL VALVE INCOMPETENCE [None]
